FAERS Safety Report 17362737 (Version 2)
Quarter: 2020Q1

REPORT INFORMATION
  Report Type: Spontaneous
  Country: JP (occurrence: JP)
  Receive Date: 20200203
  Receipt Date: 20200205
  Transmission Date: 20200409
  Serious: Yes (Other)
  Sender: FDA-Public Use
  Company Number: JP-PFIZER INC-2020042032

PATIENT
  Age: 8 Decade
  Sex: Female

DRUGS (1)
  1. METHOTREXATE 1000MG [Suspect]
     Active Substance: METHOTREXATE
     Dosage: 2000 MG, UNK
     Dates: start: 20200128

REACTIONS (2)
  - Drug clearance decreased [Unknown]
  - Renal impairment [Unknown]
